FAERS Safety Report 9391043 (Version 2)
Quarter: 2013Q3

REPORT INFORMATION
  Report Type: Spontaneous
  Country: DE (occurrence: JP)
  Receive Date: 20130709
  Receipt Date: 20130801
  Transmission Date: 20140515
  Serious: Yes (Hospitalization, Other)
  Sender: FDA-Public Use
  Company Number: JP-FRI-1000046493

PATIENT
  Age: 91 Year
  Sex: Male

DRUGS (9)
  1. MEMANTINE [Suspect]
     Dosage: 20 MG
     Route: 048
     Dates: start: 20130408, end: 20130520
  2. NORVASC [Suspect]
     Indication: HYPERTENSION
     Dosage: 5 MG
     Route: 048
     Dates: start: 20130408, end: 20130526
  3. NEULEPTIL [Suspect]
     Indication: RESTLESSNESS
     Dosage: 10 MG
     Route: 048
     Dates: start: 20130408, end: 20130520
  4. BAYASPIRIN [Concomitant]
     Indication: ANGINA PECTORIS
     Dosage: 100 MG
     Route: 048
     Dates: start: 20130408
  5. ISOSORBIDE [Concomitant]
     Indication: ANGINA PECTORIS
     Dosage: 40 MG
     Route: 048
     Dates: start: 20130408
  6. LASIX [Concomitant]
     Indication: HYPERTENSION
     Dosage: 40 MG
     Route: 048
     Dates: start: 20130408
  7. OMEPRAZON [Concomitant]
     Indication: GASTRITIS
     Dosage: 10 MG
     Route: 048
     Dates: start: 20130408, end: 20130520
  8. ROZEREM [Concomitant]
     Indication: INSOMNIA
     Dosage: 8 MG
     Route: 048
     Dates: start: 20130708
  9. ROZEREM [Concomitant]
     Indication: SLEEP PHASE RHYTHM DISTURBANCE

REACTIONS (1)
  - Loss of consciousness [Recovered/Resolved]
